FAERS Safety Report 8406130 (Version 4)
Quarter: 2012Q4

REPORT INFORMATION
  Report Type: 
  Country: US (occurrence: US)
  Receive Date: 20120215
  Receipt Date: 20121217
  Transmission Date: 20130627
  Serious: Yes (Other)
  Sender: FDA-Public Use
  Company Number: US-PFIZER INC-2012037297

PATIENT
  Age: 61 Year
  Sex: Male
  Weight: 96.15 kg

DRUGS (3)
  1. XALATAN [Suspect]
     Indication: GLAUCOMA
     Dosage: daily
     Route: 047
  2. PRISTIQ [Suspect]
     Dosage: UNK
  3. PRILOSEC [Concomitant]
     Indication: INDIGESTION
     Dosage: UNK

REACTIONS (3)
  - Diabetes mellitus [Unknown]
  - Eye pruritus [Recovered/Resolved]
  - Dry eye [Recovered/Resolved]
